FAERS Safety Report 4701178-2 (Version None)
Quarter: 2005Q2

REPORT INFORMATION
  Report Type: 
  Country: None (occurrence: None)
  Receive Date: 20050628
  Receipt Date: 20050615
  Transmission Date: 20051028
  Serious: Yes (Hospitalization)
  Sender: FDA-Public Use
  Company Number: GB-JNJFOC-20050601373

PATIENT
  Sex: Female

DRUGS (1)
  1. TOPAMAX [Suspect]
     Indication: EPILEPSY
     Route: 049

REACTIONS (5)
  - ABDOMINAL PAIN [None]
  - GASTROINTESTINAL DISORDER [None]
  - INFLAMMATION [None]
  - LYMPHADENOPATHY [None]
  - RENAL DISORDER [None]
